FAERS Safety Report 21413106 (Version 3)
Quarter: 2024Q2

REPORT INFORMATION
  Report Type: Report from Study
  Country: CZ (occurrence: CZ)
  Receive Date: 20221005
  Receipt Date: 20240525
  Transmission Date: 20240716
  Serious: Yes (Death, Hospitalization, Other)
  Sender: FDA-Public Use
  Company Number: CZ-CELLTRION INC.-2022CZ015492

PATIENT

DRUGS (1)
  1. INFLIXIMAB-DYYB [Suspect]
     Active Substance: INFLIXIMAB-DYYB
     Indication: Psoriatic arthropathy
     Dosage: UNK
     Route: 058

REACTIONS (3)
  - Organ failure [Fatal]
  - Nasopharyngeal cancer [Recovering/Resolving]
  - Polypectomy [Recovered/Resolved]

NARRATIVE: CASE EVENT DATE: 20220801
